FAERS Safety Report 4636309-6 (Version None)
Quarter: 2005Q2

REPORT INFORMATION
  Report Type: 
  Country: None (occurrence: None)
  Receive Date: 20050415
  Receipt Date: 20040813
  Transmission Date: 20051028
  Serious: No
  Sender: FDA-Public Use
  Company Number: US-BRISTOL-MYERS SQUIBB COMPANY-12676524

PATIENT
  Age: 66 Year
  Sex: Male

DRUGS (6)
  1. CARBOPLATIN [Suspect]
     Indication: LUNG NEOPLASM MALIGNANT
     Dosage: AUC 6 THERAPY DATES: 16-JUN-2003 TO 17-NOV-2003
     Route: 042
     Dates: start: 20031117, end: 20031117
  2. PACLITAXEL [Concomitant]
     Indication: LUNG NEOPLASM MALIGNANT
     Route: 042
     Dates: start: 20030616, end: 20031117
  3. GRANISETRON [Concomitant]
     Indication: PREMEDICATION
     Route: 042
     Dates: start: 20031117, end: 20031117
  4. DIPHENHYDRAMINE HCL [Concomitant]
     Indication: PREMEDICATION
     Route: 042
     Dates: start: 20031117, end: 20031117
  5. DEXAMETHASONE [Concomitant]
     Indication: PREMEDICATION
     Dosage: 4 MG ORALLY TWICE DAILY 3 DAYS PRIOR TO CHEMO
     Route: 042
     Dates: start: 20031117, end: 20031117
  6. FAMOTIDINE [Concomitant]
     Indication: PREMEDICATION
     Route: 042
     Dates: start: 20031117, end: 20031117

REACTIONS (1)
  - NAUSEA [None]
